FAERS Safety Report 14333915 (Version 3)
Quarter: 2018Q1

REPORT INFORMATION
  Report Type: Spontaneous
  Country: US (occurrence: US)
  Receive Date: 20171228
  Receipt Date: 20180226
  Transmission Date: 20180509
  Serious: Yes (Hospitalization, Other)
  Sender: FDA-Public Use
  Company Number: US-PFIZER INC-2017549690

PATIENT
  Age: 44 Year
  Sex: Female
  Weight: 54 kg

DRUGS (19)
  1. ACETAMINOPHEN. [Concomitant]
     Active Substance: ACETAMINOPHEN
     Dosage: 650 MG, AS NEEDED (EVERY 6 HOURS)
     Route: 048
  2. OXYCODONE AND ACETAMINOPHEN [Concomitant]
     Active Substance: ACETAMINOPHEN\OXYCODONE HYDROCHLORIDE
     Dosage: 2 DF, AS NEEDED [OXYCODONE-5MG]/[ACETAMINOPHEN-325MG] (EVERY 6 HOURS)
     Route: 048
  3. DIPHENHYDRAMINE. [Concomitant]
     Active Substance: DIPHENHYDRAMINE
     Dosage: 25 MG, AS NEEDED (EVERY 6 HOURS)
     Route: 048
  4. NORCO [Concomitant]
     Active Substance: ACETAMINOPHEN\HYDROCODONE BITARTRATE
     Indication: PAIN
     Dosage: 1 DF, AS NEEDED(EVERY 6 HOURS )[HYDROCODONE BITARTRATE: 5 MG]/[PARACETAMOL: 325 MG]
     Route: 048
  5. CYCLOPHOSPHAMIDE. [Suspect]
     Active Substance: CYCLOPHOSPHAMIDE
     Indication: BREAST CANCER
     Dosage: (600 MG/M2=918 MG)
     Route: 042
     Dates: start: 20171128, end: 20180116
  6. SODIUM CHLORIDE. [Concomitant]
     Active Substance: SODIUM CHLORIDE
     Dosage: UNK (0.9 1000 ML; 125 ML/HR)
     Route: 042
  7. DIPHENHYDRAMINE. [Concomitant]
     Active Substance: DIPHENHYDRAMINE
     Dosage: UNK UNK, AS NEEDED (EVERY 6 HOURS)
     Route: 042
  8. MAALOX PLUS EXTRA STRENGTH [Concomitant]
     Dosage: UNK UNK, AS NEEDED(EVERY 4 HOURS)[ALUMINUM HYDROXIDE: 400MG/5ML]/[MAGNESIUM HYDROXIDE: 400MG/5ML]/[S
     Route: 048
  9. SUDAFED [Concomitant]
     Active Substance: PSEUDOEPHEDRINE HYDROCHLORIDE
     Indication: HYPERSENSITIVITY
     Dosage: 30 MG, AS NEEDED
     Route: 048
  10. MAALOX PLUS EXTRA STRENGTH [Concomitant]
     Dosage: UNK UNK, AS NEEDED (EVERY 4 HOURS)
     Route: 048
  11. DOXORUBICIN HCL [Suspect]
     Active Substance: DOXORUBICIN HYDROCHLORIDE
     Indication: NEOPLASM MALIGNANT
  12. HYDROCODONE/ACETAMINOPHEN [Concomitant]
     Active Substance: ACETAMINOPHEN\HYDROCODONE
     Dosage: 1 DF, AS NEEDED [HYDROCODONE-5MG]/[ACETAMINOPHEN-325MG] (EVERY 6 HOURS)
     Route: 048
  13. PROMETHAZINE [Concomitant]
     Active Substance: PROMETHAZINE\PROMETHAZINE HYDROCHLORIDE
     Dosage: UNK UNK, AS NEEDED (EVERY 6 HOURS)
     Route: 042
  14. DOXORUBICIN HCL [Suspect]
     Active Substance: DOXORUBICIN HYDROCHLORIDE
     Indication: BREAST CANCER FEMALE
     Dosage: 60 MG/M2=92MG
     Route: 042
     Dates: start: 20171128, end: 20180116
  15. ZOLPIDEM [Concomitant]
     Active Substance: ZOLPIDEM\ZOLPIDEM TARTRATE
     Dosage: 5 MG, AS NEEDED (EVERY NIGHT AT BEDTIME)
     Route: 060
  16. ADVIL [Concomitant]
     Active Substance: IBUPROFEN
     Indication: PAIN
     Dosage: UNK UNK, AS NEEDED(EVERY 6 HOURS PRN)
     Route: 048
  17. SODIUM CHLORIDE. [Concomitant]
     Active Substance: SODIUM CHLORIDE
     Dosage: UNK, AS NEEDED (0.9 10 ML EVERY 6 HOURS)
  18. ONDANSETRON HCL [Concomitant]
     Active Substance: ONDANSETRON HYDROCHLORIDE
     Dosage: UNK UNK, AS NEEDED (EVERY 12 HOURS AS NEEDED)
  19. DILAUDID [Concomitant]
     Active Substance: HYDROMORPHONE HYDROCHLORIDE
     Dosage: UNK UNK, AS NEEDED (EVERY 30 MINUTES)
     Route: 042

REACTIONS (9)
  - Pleural effusion [Not Recovered/Not Resolved]
  - Impaired quality of life [Unknown]
  - Haemothorax [Not Recovered/Not Resolved]
  - Dyspnoea [Recovering/Resolving]
  - Product administered at inappropriate site [Unknown]
  - Chest discomfort [Recovering/Resolving]
  - Pneumonitis [Not Recovered/Not Resolved]
  - Traumatic lung injury [Unknown]
  - Pleuritic pain [Unknown]

NARRATIVE: CASE EVENT DATE: 20171207
